FAERS Safety Report 18379106 (Version 1)
Quarter: 2020Q4

REPORT INFORMATION
  Report Type: Spontaneous
  Country: US (occurrence: US)
  Receive Date: 20201013
  Receipt Date: 20201013
  Transmission Date: 20210114
  Serious: Yes (Other)
  Sender: FDA-Public Use
  Company Number: US-PURDUE-USA-2020-0170376

PATIENT
  Sex: Male

DRUGS (1)
  1. OXYCONTIN [Suspect]
     Active Substance: OXYCODONE HYDROCHLORIDE
     Indication: PAIN MANAGEMENT
     Dosage: UNK
     Route: 048
     Dates: start: 2004

REACTIONS (7)
  - Drug dependence [Unknown]
  - Pain [Unknown]
  - Disease progression [Unknown]
  - Mood swings [Unknown]
  - Disturbance in attention [Unknown]
  - Disability [Unknown]
  - Depression [Unknown]
